FAERS Safety Report 17647999 (Version 1)
Quarter: 2020Q2

REPORT INFORMATION
  Report Type: Spontaneous
  Country: IT (occurrence: IT)
  Receive Date: 20200408
  Receipt Date: 20200408
  Transmission Date: 20200713
  Serious: Yes (Death, Hospitalization, Other)
  Sender: FDA-Public Use
  Company Number: IT-MALLINCKRODT-T202001590

PATIENT

DRUGS (1)
  1. UVADEX [Suspect]
     Active Substance: METHOXSALEN
     Indication: COMPLICATIONS OF TRANSPLANTED LUNG
     Dosage: UNK (EXTRACORPOREAL)
     Route: 050

REACTIONS (6)
  - Product use in unapproved indication [Unknown]
  - Respiratory tract infection [Unknown]
  - Vascular access complication [Unknown]
  - Death [Fatal]
  - Therapy non-responder [Unknown]
  - Staphylococcal sepsis [Unknown]
